FAERS Safety Report 7760673-2 (Version None)
Quarter: 2011Q3

REPORT INFORMATION
  Report Type: 
  Country: None (occurrence: None)
  Receive Date: 20110919
  Receipt Date: 20110512
  Transmission Date: 20111222
  Serious: No
  Sender: FDA-Public Use
  Company Number: US-BAYER-2011-042897

PATIENT
  Age: 45 Year
  Sex: Female

DRUGS (1)
  1. ULTRAVIST 150 [Suspect]
     Indication: DIAGNOSTIC PROCEDURE
     Dosage: 150 ML, UNK
     Route: 042
     Dates: start: 20110510, end: 20110510

REACTIONS (2)
  - EYE SWELLING [None]
  - SWELLING FACE [None]
